FAERS Safety Report 13647112 (Version 1)
Quarter: 2017Q2

REPORT INFORMATION
  Report Type: Spontaneous
  Country: US (occurrence: US)
  Receive Date: 20170613
  Receipt Date: 20170613
  Transmission Date: 20170830
  Serious: Yes (Other)
  Sender: FDA-Public Use
  Company Number: US-PFIZER INC-2017246510

PATIENT
  Age: 20 Year
  Sex: Male

DRUGS (1)
  1. DOXYCYCLINE HYCLATE. [Suspect]
     Active Substance: DOXYCYCLINE HYCLATE
     Indication: SECONDARY SYPHILIS
     Dosage: 100 MG, 2X/DAY (EVERY 12 HOURS )

REACTIONS (1)
  - Jarisch-Herxheimer reaction [Unknown]
